FAERS Safety Report 9846081 (Version 1)
Quarter: 2014Q1

REPORT INFORMATION
  Report Type: Report from Study
  Country: CA (occurrence: CA)
  Receive Date: 20140127
  Receipt Date: 20140127
  Transmission Date: 20141002
  Serious: Yes (Hospitalization)
  Sender: FDA-Public Use
  Company Number: CA-ACTELION-A-NJ2014-93824

PATIENT
  Age: 69 Year
  Sex: Female
  Weight: 49.89 kg

DRUGS (9)
  1. VELETRI [Suspect]
     Indication: PULMONARY HYPERTENSION
     Dosage: 53 NG/KG, PER MIN
     Route: 041
     Dates: start: 20131113
  2. IRON [Concomitant]
  3. TYLENOL [Concomitant]
     Dosage: 325 MG, UNK
  4. SYNTHROID [Concomitant]
  5. FUROSEMIDE TEVA [Concomitant]
  6. CALCIUM W/MAGNESIUM/VITAMIN D [Concomitant]
  7. PANTOPRAZOLE [Concomitant]
  8. SPIRONOLACTONE TEVA [Concomitant]
     Dosage: 50 MG, UNK
  9. RISEDRONATE SODIUM [Concomitant]
     Dosage: 35 MG, UNK

REACTIONS (4)
  - Bronchitis [Recovered/Resolved]
  - Scleroderma [Recovered/Resolved]
  - Local swelling [Recovered/Resolved]
  - Musculoskeletal stiffness [Recovered/Resolved]
